FAERS Safety Report 9885983 (Version 2)
Quarter: 2014Q2

REPORT INFORMATION
  Report Type: Spontaneous
  Country: GB (occurrence: GB)
  Receive Date: 20140210
  Receipt Date: 20140411
  Transmission Date: 20141212
  Serious: Yes (Hospitalization)
  Sender: FDA-Public Use
  Company Number: GB-GLAXOSMITHKLINE-B0965132A

PATIENT
  Age: 43 Year
  Sex: Female

DRUGS (3)
  1. VENTOLIN [Suspect]
     Indication: INVESTIGATION
     Route: 055
     Dates: start: 20131106
  2. VIMPAT [Concomitant]
     Indication: EPILEPSY
     Dosage: 300MG PER DAY
     Route: 048
  3. NAPROXEN [Concomitant]
     Dosage: 750MG PER DAY
     Route: 048
     Dates: start: 20130903

REACTIONS (1)
  - Epilepsy [Recovered/Resolved]
